FAERS Safety Report 9362640 (Version 1)
Quarter: 2013Q2

REPORT INFORMATION
  Report Type: Spontaneous
  Country: US (occurrence: US)
  Receive Date: 20130622
  Receipt Date: 20130622
  Transmission Date: 20140414
  Serious: No
  Sender: FDA-Public Use
  Company Number: US-US-EMD SERONO, INC.-7142290

PATIENT
  Age: 65 Year
  Sex: Female

DRUGS (4)
  1. REBIF [Suspect]
     Indication: PRODUCT USED FOR UNKNOWN INDICATION
     Route: 058
     Dates: start: 200712
  2. SUMATRIPTAN SUCCINATE [Concomitant]
     Indication: PRODUCT USED FOR UNKNOWN INDICATION
  3. BUTALBITAL/ASPIRIN/CAFFEINE/CODEINE [Concomitant]
     Indication: PRODUCT USED FOR UNKNOWN INDICATION
     Dosage: 50-325-40
  4. PROPRANOLOL [Concomitant]
     Indication: PRODUCT USED FOR UNKNOWN INDICATION

REACTIONS (1)
  - Osteoporosis [Unknown]
